FAERS Safety Report 9457903 (Version 3)
Quarter: 2013Q4

REPORT INFORMATION
  Report Type: Spontaneous
  Country: US (occurrence: None)
  Receive Date: 20130809
  Receipt Date: 20131003
  Transmission Date: 20140711
  Serious: Yes (Other)
  Sender: FDA-Public Use
  Company Number: JPI-P-034154

PATIENT
  Age: 67 Year
  Sex: Female

DRUGS (1)
  1. XYREM (500 MILLIGRAM/MILLILITERS, SOLUTION) (SODIUM OXYBATE) [Suspect]
     Indication: NARCOLEPSY
     Dosage: 6 GM ( 3 GM 2 IN 1 D)
     Route: 048
     Dates: start: 20121019

REACTIONS (6)
  - Electrocardiogram abnormal [None]
  - Cardiomyopathy [None]
  - Orthopaedic procedure [None]
  - Fall [None]
  - Surgical procedure repeated [None]
  - Surgical failure [None]
